FAERS Safety Report 17530673 (Version 1)
Quarter: 2020Q1

REPORT INFORMATION
  Report Type: Report from Study
  Country: CO (occurrence: CO)
  Receive Date: 20200312
  Receipt Date: 20200312
  Transmission Date: 20200409
  Serious: Yes (Other)
  Sender: FDA-Public Use
  Company Number: CO-ROCHE-2496757

PATIENT
  Sex: Female

DRUGS (2)
  1. XELODA [Suspect]
     Active Substance: CAPECITABINE
     Indication: PRODUCT USED FOR UNKNOWN INDICATION
     Route: 048
  2. ACETAMINOPHEN. [Concomitant]
     Active Substance: ACETAMINOPHEN

REACTIONS (7)
  - Skin exfoliation [Unknown]
  - Pain [Unknown]
  - Poisoning [Unknown]
  - Burning sensation [Unknown]
  - Laboratory test abnormal [Unknown]
  - Skin discolouration [Unknown]
  - Anorectal discomfort [Unknown]
